FAERS Safety Report 8789365 (Version 1)
Quarter: 2012Q4

REPORT INFORMATION
  Report Type: Spontaneous
  Country: DK (occurrence: None)
  Receive Date: 20120905
  Receipt Date: 20120905
  Transmission Date: 20130627
  Serious: Yes (Other)
  Sender: FDA-Public Use
  Company Number: 2012MA010468

PATIENT
  Age: 63 Year
  Sex: Male

DRUGS (18)
  1. METFORMIN HYDROCHLORIDE [Suspect]
     Dates: start: 20120424
  2. ALLOPURINOL [Concomitant]
  3. AMLODIPINE [Concomitant]
  4. CETRIZINE [Concomitant]
  5. DOXAZOSIN [Concomitant]
  6. GAVISCON [Concomitant]
  7. GLICLAZIDE [Concomitant]
  8. MOMETASONE [Concomitant]
  9. OMEPRAZOLE [Concomitant]
  10. PERINDOPRIL [Concomitant]
  11. SALBUTAMOL [Concomitant]
  12. SERETIDE [Concomitant]
  13. SIMVASTATIN [Concomitant]
  14. TIOTROPIUM BROMIDE [Concomitant]
  15. CO-CODAMOL [Concomitant]
  16. GLYCERYL TRINITRATE [Concomitant]
  17. AMITRIPTYLINE [Concomitant]
  18. DOXYCYCLINE [Concomitant]

REACTIONS (1)
  - Hypersensitivity [None]
